FAERS Safety Report 5854348-4 (Version None)
Quarter: 2008Q3

REPORT INFORMATION
  Report Type: 
  Country: None (occurrence: None)
  Receive Date: 20080822
  Receipt Date: 20080822
  Transmission Date: 20090109
  Serious: Yes (Death)
  Sender: FDA-Public Use
  Company Number: IN-BOEHRINGER INGELHEIM GMBH, GERMANY-2008-BP-13206SG

PATIENT
  Age: 80 Year
  Sex: Female

DRUGS (1)
  1. AGGRENOX [Suspect]
     Indication: ISCHAEMIC STROKE
     Route: 048
     Dates: start: 20080527, end: 20080730

REACTIONS (1)
  - DEATH [None]
